FAERS Safety Report 20018616 (Version 1)
Quarter: 2021Q4

REPORT INFORMATION
  Report Type: Spontaneous
  Country: CN (occurrence: CN)
  Receive Date: 20211101
  Receipt Date: 20211101
  Transmission Date: 20220303
  Serious: Yes (Other)
  Sender: FDA-Public Use
  Company Number: None

PATIENT
  Age: 49 Year
  Sex: Female
  Weight: 46 kg

DRUGS (6)
  1. OLANZAPINE [Suspect]
     Active Substance: OLANZAPINE
     Indication: Schizophrenia
     Dosage: 2.5MG,BID
     Route: 048
     Dates: start: 20210915, end: 20210917
  2. OLANZAPINE [Suspect]
     Active Substance: OLANZAPINE
     Dosage: DOSE INCREASED TO 5MG,BID
     Route: 048
     Dates: start: 20210917, end: 20210919
  3. OLANZAPINE [Suspect]
     Active Substance: OLANZAPINE
     Dosage: DOSE REDUCED TO 5MG,QD
     Route: 048
     Dates: start: 20210919, end: 20210923
  4. OLANZAPINE [Suspect]
     Active Substance: OLANZAPINE
     Dosage: DOSE INCREASED TO 10MG,QD
     Route: 048
     Dates: start: 20210919, end: 20210923
  5. OLANZAPINE [Suspect]
     Active Substance: OLANZAPINE
     Dosage: DOSE REDUCED
     Route: 048
     Dates: start: 20210923
  6. OLANZAPINE [Suspect]
     Active Substance: OLANZAPINE
     Dosage: 10MG,QD
     Route: 048
     Dates: start: 20210923, end: 20211006

REACTIONS (2)
  - Granulocytopenia [Recovering/Resolving]
  - Hepatic function abnormal [Recovering/Resolving]

NARRATIVE: CASE EVENT DATE: 20211005
